FAERS Safety Report 5779974-2 (Version None)
Quarter: 2008Q2

REPORT INFORMATION
  Report Type: 
  Country: None (occurrence: None)
  Receive Date: 20080620
  Receipt Date: 20080616
  Transmission Date: 20081010
  Serious: Yes (Other)
  Sender: FDA-Public Use
  Company Number: US-JNJFOC-20080604392

PATIENT
  Age: 7 Year
  Sex: Male

DRUGS (3)
  1. CONCERTA [Suspect]
     Indication: ATTENTION DEFICIT/HYPERACTIVITY DISORDER
     Route: 048
  2. TRAZODONE HCL [Concomitant]
     Indication: POST-TRAUMATIC STRESS DISORDER
     Route: 048
  3. ALBUTEROL [Concomitant]
     Indication: ASTHMA

REACTIONS (2)
  - CONVULSION [None]
  - HEADACHE [None]
